FAERS Safety Report 6797414-1 (Version None)
Quarter: 2010Q2

REPORT INFORMATION
  Report Type: 
  Country: None (occurrence: None)
  Receive Date: 20100623
  Receipt Date: 20100609
  Transmission Date: 20101027
  Serious: Yes (Hospitalization)
  Sender: FDA-Public Use
  Company Number: 003463

PATIENT
  Sex: 0

DRUGS (3)
  1. LACOSAMIDE [Suspect]
     Dosage: SEE IMAGE
     Dates: start: 20091101, end: 20091215
  2. LACOSAMIDE [Suspect]
     Dosage: SEE IMAGE
     Dates: start: 20091216
  3. LACOSAMIDE [Suspect]
     Dosage: SEE IMAGE
     Dates: start: 20100101

REACTIONS (2)
  - DRUG PRESCRIBING ERROR [None]
  - INCORRECT DOSE ADMINISTERED [None]
